FAERS Safety Report 10733414 (Version 1)
Quarter: 2015Q1

REPORT INFORMATION
  Report Type: Report from Study
  Country: MX (occurrence: MX)
  Receive Date: 20150123
  Receipt Date: 20150123
  Transmission Date: 20150721
  Serious: Yes (Other)
  Sender: FDA-Public Use
  Company Number: PHHY2014MX104418

PATIENT
  Age: 53 Year
  Sex: Female

DRUGS (8)
  1. MIFLONIDE [Concomitant]
     Active Substance: BUDESONIDE
     Indication: ASTHMA
     Dosage: UNK UKN, UNK
  2. COMBIVENT [Concomitant]
     Active Substance: ALBUTEROL SULFATE\IPRATROPIUM BROMIDE
     Indication: ASTHMA
     Dosage: 1 UKN, DAILY
     Route: 065
     Dates: start: 201402
  3. SALBUTAMOL [Concomitant]
     Active Substance: ALBUTEROL
     Indication: ASTHMA
     Dosage: UNK UKN, UNK
     Route: 065
  4. TRILEPTAL [Suspect]
     Active Substance: OXCARBAZEPINE
     Dosage: UNK UKN, UNK
     Route: 048
  5. FORADIL [Concomitant]
     Active Substance: FORMOTEROL FUMARATE
     Indication: ASTHMA
     Dosage: UNK UKN, UNK
  6. TRILEPTAL [Suspect]
     Active Substance: OXCARBAZEPINE
     Indication: EPILEPSY
     Dosage: 1 DF, QD
     Route: 048
     Dates: start: 201204
  7. GABATIN//GABAPENTIN [Concomitant]
     Indication: PRODUCT USED FOR UNKNOWN INDICATION
     Route: 065
  8. TRILEPTAL [Suspect]
     Active Substance: OXCARBAZEPINE
     Dosage: 1 DF, QD
     Route: 048

REACTIONS (23)
  - Feeding disorder [Recovered/Resolved]
  - Injury [Recovering/Resolving]
  - Feeling abnormal [Recovering/Resolving]
  - Swelling [Unknown]
  - Infection [Not Recovered/Not Resolved]
  - Dyspnoea [Unknown]
  - Fatigue [Recovering/Resolving]
  - Gastrooesophageal reflux disease [Recovered/Resolved]
  - Hypoaesthesia oral [Recovering/Resolving]
  - Headache [Recovering/Resolving]
  - Dizziness [Recovering/Resolving]
  - Depressed mood [Unknown]
  - Inflammation [Recovered/Resolved]
  - Mental disorder [Unknown]
  - Visual impairment [Recovering/Resolving]
  - Cholelithiasis [Recovered/Resolved]
  - Lip swelling [Recovering/Resolving]
  - Post procedural complication [Unknown]
  - Angina pectoris [Recovering/Resolving]
  - Hiatus hernia [Recovered/Resolved]
  - Depression [Not Recovered/Not Resolved]
  - Coma [Recovering/Resolving]
  - Asthenia [Recovering/Resolving]

NARRATIVE: CASE EVENT DATE: 201407
